FAERS Safety Report 24784439 (Version 1)
Quarter: 2024Q4

REPORT INFORMATION
  Report Type: Spontaneous
  Country: US (occurrence: None)
  Receive Date: 20241223
  Receipt Date: 20241223
  Transmission Date: 20250115
  Serious: Yes (Death)
  Sender: Public
  Company Number: None

PATIENT
  Age: 70 Year
  Sex: Female
  Weight: 43.8 kg

DRUGS (1)
  1. MYFORTIC [Suspect]
     Active Substance: MYCOPHENOLATE SODIUM
     Indication: Lung transplant
     Dosage: FREQUENCY : DAILY;?
     Route: 048
     Dates: start: 20220329, end: 20241218

REACTIONS (1)
  - Death [None]

NARRATIVE: CASE EVENT DATE: 20241218
